FAERS Safety Report 23304126 (Version 1)
Quarter: 2023Q4

REPORT INFORMATION
  Report Type: Spontaneous
  Country: ES (occurrence: ES)
  Receive Date: 20231218
  Receipt Date: 20231218
  Transmission Date: 20240110
  Serious: Yes (Hospitalization, Other)
  Sender: FDA-Public Use
  Company Number: ES-AEMPS-1458082

PATIENT
  Age: 83 Year
  Sex: Female
  Weight: 58 kg

DRUGS (2)
  1. IRINOTECAN [Suspect]
     Active Substance: IRINOTECAN
     Indication: Colorectal adenocarcinoma
     Dosage: 150 MILLIGRAM EVERY 14 DAYS (RECEIVES 4 CYCLES, THE FIRST 150MG, THE OTHER 3 140MG DUE TO DOSE ADJUS
     Route: 042
     Dates: start: 20230712, end: 20230824
  2. AVASTIN [Concomitant]
     Active Substance: BEVACIZUMAB
     Indication: Colorectal adenocarcinoma
     Dosage: 580 MILLIGRAM EVERY 14 DAYS
     Route: 042
     Dates: start: 20230125

REACTIONS (2)
  - Acute kidney injury [Recovered/Resolved]
  - Diarrhoea [Recovered/Resolved]

NARRATIVE: CASE EVENT DATE: 20230830
